FAERS Safety Report 7538008 (Version 3)
Quarter: 2014Q1

REPORT INFORMATION
  Report Type: Spontaneous
  Country: US (occurrence: US)
  Receive Date: 20100812
  Receipt Date: 20140206
  Transmission Date: 20141002
  Serious: Yes (Other)
  Sender: FDA-Public Use
  Company Number: US-BAYER-201030244NA

PATIENT
  Age: 25 Year
  Sex: Female
  Weight: 97.51 kg

DRUGS (5)
  1. OCELLA [Suspect]
     Indication: CONTRACEPTION
     Dates: start: 2000, end: 20100615
  2. OCELLA [Suspect]
     Indication: MENSTRUAL DISORDER
  3. YAZ [Suspect]
     Indication: CONTRACEPTION
     Dosage: UNK UNK, UNK
     Route: 048
     Dates: start: 2008, end: 20100615
  4. YAZ [Suspect]
     Indication: MENSTRUAL DISORDER
  5. YASMIN [Suspect]
     Dosage: UNK UNK, UNK
     Route: 048
     Dates: end: 2008

REACTIONS (2)
  - Cholecystectomy [None]
  - Cholecystitis chronic [None]
